FAERS Safety Report 11763691 (Version 1)
Quarter: 2015Q4

REPORT INFORMATION
  Report Type: Spontaneous
  Country: US (occurrence: US)
  Receive Date: 20151120
  Receipt Date: 20151120
  Transmission Date: 20160304
  Serious: No
  Sender: FDA-Public Use
  Company Number: US-ELI_LILLY_AND_COMPANY-US201304004220

PATIENT
  Age: 62 Year
  Sex: Female

DRUGS (1)
  1. FORTEO [Suspect]
     Active Substance: TERIPARATIDE
     Indication: OSTEOARTHRITIS
     Dosage: 1 DF, QD

REACTIONS (4)
  - Medication error [Unknown]
  - Fatigue [Unknown]
  - Off label use [Unknown]
  - Overdose [Unknown]

NARRATIVE: CASE EVENT DATE: 20130412
